FAERS Safety Report 5271128-1 (Version None)
Quarter: 2007Q1

REPORT INFORMATION
  Report Type: 
  Country: None (occurrence: None)
  Receive Date: 20070321
  Receipt Date: 20070309
  Transmission Date: 20070707
  Serious: Yes (Other)
  Sender: FDA-Public Use
  Company Number: FR-BAYER-200710122BFR

PATIENT
  Age: 62 Year
  Sex: Female
  Weight: 70 kg

DRUGS (4)
  1. IZILOX [Suspect]
     Indication: CYSTITIS
     Dosage: UNIT DOSE: 400 MG
     Route: 048
     Dates: start: 20060804, end: 20060805
  2. FLECAINIDE ACETATE [Concomitant]
     Indication: UNEVALUABLE EVENT
     Route: 048
  3. DETENSIEL [Concomitant]
     Indication: UNEVALUABLE EVENT
     Route: 048
  4. PREVISCAN [Concomitant]
     Indication: UNEVALUABLE EVENT
     Route: 048

REACTIONS (1)
  - TACHYARRHYTHMIA [None]
